FAERS Safety Report 6972818-2 (Version None)
Quarter: 2010Q3

REPORT INFORMATION
  Report Type: 
  Country: None (occurrence: None)
  Receive Date: 20100909
  Receipt Date: 20100830
  Transmission Date: 20110219
  Serious: Yes (Hospitalization)
  Sender: FDA-Public Use
  Company Number: US-SANOFI-AVENTIS-2010SA048498

PATIENT
  Age: 75 Year
  Sex: Male
  Weight: 103 kg

DRUGS (15)
  1. MULTAQ [Suspect]
     Indication: ATRIAL FIBRILLATION
     Route: 048
     Dates: start: 20091005, end: 20100810
  2. REMICADE [Concomitant]
     Dosage: ONCE EVERY 6 WEEKS
  3. SULAR [Concomitant]
  4. COUMADIN [Concomitant]
  5. FOLIC ACID [Concomitant]
  6. TAMSULOSIN HCL [Concomitant]
  7. METHOTREXATE [Concomitant]
     Dosage: 6 TABLETS ONCE A WEEK
  8. NEXIUM [Concomitant]
  9. LUTEIN [Concomitant]
  10. NIACIN [Concomitant]
  11. POTASSIUM [Concomitant]
  12. MULTI-VITAMINS [Concomitant]
  13. SIMVASTATIN [Concomitant]
  14. PREVACID [Concomitant]
  15. VITAMIN D3 [Concomitant]

REACTIONS (5)
  - ATRIAL FIBRILLATION [None]
  - DRUG INEFFECTIVE [None]
  - SWELLING [None]
  - TACHYCARDIA [None]
  - WEIGHT INCREASED [None]
